FAERS Safety Report 9010058 (Version 4)
Quarter: 2013Q2

REPORT INFORMATION
  Report Type: Spontaneous
  Country: US (occurrence: US)
  Receive Date: 20130111
  Receipt Date: 20130510
  Transmission Date: 20140414
  Serious: Yes (Death)
  Sender: FDA-Public Use
  Company Number: US-009507513-1301USA003945

PATIENT
  Age: 67 Year
  Sex: Female

DRUGS (4)
  1. EMEND [Suspect]
     Indication: NAUSEA
     Dosage: 1 DF, QD, FOR 3 DAYS, EVERY 2 WEEKS
     Route: 048
     Dates: start: 20120822
  2. OXALIPLATIN [Concomitant]
  3. DECADRON [Concomitant]
  4. LEUCOVORIN [Concomitant]

REACTIONS (1)
  - Death [Fatal]
